FAERS Safety Report 4540034-X (Version None)
Quarter: 2004Q4

REPORT INFORMATION
  Report Type: 
  Country: None (occurrence: None)
  Receive Date: 20041223
  Receipt Date: 20041213
  Transmission Date: 20050328
  Serious: Yes (Disabling, Other)
  Sender: FDA-Public Use
  Company Number: 200414509BCC

PATIENT
  Age: 60 Year
  Sex: Male

DRUGS (2)
  1. ALEVE [Suspect]
     Indication: ARTHRALGIA
     Dosage: 220 MG, QD, ORAL
     Route: 048
  2. ZOCOR [Concomitant]

REACTIONS (5)
  - CEREBROVASCULAR ACCIDENT [None]
  - DIPLOPIA [None]
  - DIZZINESS [None]
  - IMPAIRED WORK ABILITY [None]
  - VERTIGO [None]
